FAERS Safety Report 8797218 (Version 5)
Quarter: 2013Q4

REPORT INFORMATION
  Report Type: Spontaneous
  Country: US (occurrence: US)
  Receive Date: 20120920
  Receipt Date: 20131107
  Transmission Date: 20140711
  Serious: Yes (Life-Threatening, Hospitalization)
  Sender: FDA-Public Use
  Company Number: US-JNJFOC-20120906181

PATIENT
  Age: 69 Year
  Sex: Female
  Weight: 82.1 kg

DRUGS (25)
  1. XARELTO [Suspect]
     Indication: THROMBOSIS PROPHYLAXIS
     Route: 048
     Dates: start: 20120724, end: 20120731
  2. XARELTO [Suspect]
     Indication: KNEE ARTHROPLASTY
     Route: 048
     Dates: start: 20120724, end: 20120731
  3. NOVOLOG [Concomitant]
     Indication: BLOOD GLUCOSE ABNORMAL
     Dosage: 0.1 UNIT/ BEFOR MEALS AND AT BEDTIME DOSE PER SLIDING SCALE
     Route: 058
  4. LEVEMIR [Concomitant]
     Indication: BLOOD GLUCOSE ABNORMAL
     Dosage: 40 UNITS EACH MORNING
     Route: 058
  5. BENAZEPRIL HCL [Concomitant]
     Dosage: 2 DAYS
     Route: 048
  6. BENAZEPRIL HCL [Concomitant]
     Route: 048
     Dates: start: 20120723, end: 20120730
  7. VENTOLIN [Concomitant]
     Route: 055
  8. NORVASC [Concomitant]
     Route: 048
  9. ZOCOR [Concomitant]
     Route: 048
  10. NEURONTIN [Concomitant]
     Route: 048
  11. CARVEDILOL [Concomitant]
     Route: 048
  12. ALBUTEROL/IPRATROPIUM [Concomitant]
     Route: 055
  13. XANAX [Concomitant]
     Dosage: AS NEEDED
     Route: 048
  14. ADVAIR 100/50 [Concomitant]
     Route: 055
  15. PERCOCET [Concomitant]
     Indication: PAIN
     Dosage: 5-325 MG
     Route: 048
  16. IRON SUPPLEMENTS [Concomitant]
     Route: 048
  17. SODIUM CHLORIDE [Concomitant]
     Route: 065
  18. DEXTROSE [Concomitant]
     Route: 042
  19. LISINOPRIL [Concomitant]
     Dosage: 5/20 DOSE, 2DAYS
     Route: 048
     Dates: start: 20120723, end: 20130726
  20. CELEBREX [Concomitant]
     Route: 048
     Dates: start: 20120723
  21. CELEBREX [Concomitant]
     Route: 048
     Dates: start: 20120726
  22. LASIX [Concomitant]
     Route: 048
     Dates: end: 20120729
  23. VANCOMYCIN [Concomitant]
     Route: 042
     Dates: start: 20120723, end: 20120724
  24. ACETAMINOPHEN [Concomitant]
     Dosage: 5/325
     Route: 048
  25. CLINDAMYCIN [Concomitant]
     Route: 042
     Dates: start: 20120723

REACTIONS (9)
  - Upper gastrointestinal haemorrhage [Recovered/Resolved]
  - Peptic ulcer [Unknown]
  - Renal failure acute [Recovered/Resolved]
  - Renal impairment [Recovered/Resolved]
  - Mental status changes [Unknown]
  - Confusional state [Unknown]
  - Chronic obstructive pulmonary disease [Unknown]
  - Haemoglobin decreased [Not Recovered/Not Resolved]
  - International normalised ratio increased [Unknown]
